FAERS Safety Report 10810032 (Version 1)
Quarter: 2015Q1

REPORT INFORMATION
  Report Type: Spontaneous
  Country: US (occurrence: None)
  Receive Date: 20150212
  Receipt Date: 20150212
  Transmission Date: 20150721
  Serious: Yes (Hospitalization)
  Sender: FDA-Public Use
  Company Number: 201502048

PATIENT
  Age: 53 Year
  Sex: Male

DRUGS (5)
  1. HYDROCODONE/APAP (-PARACETAMOL HYDROCODONE BITARTRATE) [Concomitant]
  2. MORPHINE [Concomitant]
     Active Substance: MORPHINE
  3. PANOXYL (BENZOYL) [Concomitant]
  4. ATENOLOL. [Concomitant]
     Active Substance: ATENOLOL
  5. XIAFLEX [Suspect]
     Active Substance: COLLAGENASE CLOSTRIDIUM HISTOLYTICUM
     Indication: PEYRONIE^S DISEASE
     Dosage: INTRALESIONAL

REACTIONS (2)
  - Blister rupture [None]
  - Blister [None]
